FAERS Safety Report 14952533 (Version 1)
Quarter: 2018Q2

REPORT INFORMATION
  Report Type: Report from Study
  Country: US (occurrence: US)
  Receive Date: 20180530
  Receipt Date: 20180530
  Transmission Date: 20180711
  Serious: Yes (Hospitalization)
  Sender: FDA-Public Use
  Company Number: US-PFIZER INC-2018207198

PATIENT
  Age: 16 Year
  Sex: Male
  Weight: 50.2 kg

DRUGS (3)
  1. CYCLOPHOSPHAMIDE. [Suspect]
     Active Substance: CYCLOPHOSPHAMIDE
     Indication: RHABDOMYOSARCOMA
     Dosage: 1200 MG/M2/DOSE (40 MG/KG/DOSE IF PATIENT { 10KG) IV OVER 30-60 MINUTES ON DAY 1
     Route: 042
     Dates: start: 20110304
  2. VINORELBINE TARTRATE. [Suspect]
     Active Substance: VINORELBINE TARTRATE
     Indication: RHABDOMYOSARCOMA
     Dosage: 25 MG/M2/DOSE (0.83 MG/KG/DOSE IF PATIENT { 10KG) IV OVER 6-10 MINUTES ON DAYS 1 AND 8
     Route: 042
     Dates: start: 20110304
  3. TEMSIROLIMUS [Suspect]
     Active Substance: TEMSIROLIMUS
     Indication: RHABDOMYOSARCOMA
     Dosage: 15 MG/M2/DOSE (0.5 MG/KG/DOSE IF PATIENTS { 10KG) OVER 30-60 MINUTES ON DAYS 1, 8 AND 15
     Route: 042
     Dates: start: 20110304

REACTIONS (2)
  - Febrile neutropenia [Not Recovered/Not Resolved]
  - Device related infection [Not Recovered/Not Resolved]

NARRATIVE: CASE EVENT DATE: 20110522
